FAERS Safety Report 10102542 (Version 2)
Quarter: 2014Q3

REPORT INFORMATION
  Report Type: Spontaneous
  Country: BR (occurrence: None)
  Receive Date: 20140422
  Receipt Date: 20140714
  Transmission Date: 20150326
  Serious: Yes (Hospitalization, Disabling)
  Sender: FDA-Public Use
  Company Number: AUR-APL-2014-04835

PATIENT
  Age: 64 Year
  Sex: Male

DRUGS (8)
  1. LOSARTAN POTASSIUM (LOSARTAN POTASSIUM) [Concomitant]
     Active Substance: LOSARTAN POTASSIUM
  2. INSULIN (INSULIN) [Concomitant]
     Active Substance: INSULIN NOS
  3. METFORMIN [Suspect]
     Active Substance: METFORMIN HYDROCHLORIDE
     Indication: DIABETES MELLITUS
     Route: 048
  4. ROSUVASTATIN (ROSUVASTATIN) [Suspect]
     Active Substance: ROSUVASTATIN
     Indication: BLOOD CHOLESTEROL INCREASED
     Route: 048
     Dates: start: 20130820
  5. ASPIRINA (ACETYLSALICYLIC ACID) [Concomitant]
     Active Substance: ASPIRIN
  6. ATENOLOL 50 MG, TABLETTEN (ATENOLOL) TABLET, 50MG [Suspect]
     Active Substance: ATENOLOL
     Indication: ARRHYTHMIA
     Dosage: QAM
     Route: 048
     Dates: start: 2010
  7. BRILINTA [Suspect]
     Active Substance: TICAGRELOR
     Indication: PRODUCT USED FOR UNKNOWN INDICATION
     Dosage: 180 MG (90 MG, 2 IN 1 D), ORAL
     Route: 048
     Dates: start: 20130820
  8. MONOCORDIL [Concomitant]
     Active Substance: ISOSORBIDE MONONITRATE

REACTIONS (9)
  - Foot amputation [None]
  - Coronary artery occlusion [None]
  - Off label use [None]
  - Angiopathy [None]
  - Blindness [None]
  - Cerebrovascular accident [None]
  - Diabetic foot [None]
  - Visual impairment [None]
  - Diabetic eye disease [None]

NARRATIVE: CASE EVENT DATE: 2006
